FAERS Safety Report 17521931 (Version 1)
Quarter: 2020Q1

REPORT INFORMATION
  Report Type: Spontaneous
  Country: US (occurrence: US)
  Receive Date: 20200310
  Receipt Date: 20200310
  Transmission Date: 20200409
  Serious: No
  Sender: FDA-Public Use
  Company Number: US-FARMAPROD-201911-1754

PATIENT
  Sex: Male

DRUGS (16)
  1. OXERVATE [Suspect]
     Active Substance: CENEGERMIN-BKBJ
     Indication: ULCERATIVE KERATITIS
     Route: 047
  2. MELATONIN [Concomitant]
     Active Substance: MELATONIN
  3. COQ-10 100 MG [Concomitant]
  4. REFRESH TEARS [Concomitant]
     Active Substance: CARBOXYMETHYLCELLULOSE SODIUM
  5. LATANOPROST. [Concomitant]
     Active Substance: LATANOPROST
  6. VISION DEFENSE [Concomitant]
  7. ASPIRIN. [Concomitant]
     Active Substance: ASPIRIN
  8. ATORVASTATIN CALCIUM 10 MG [Concomitant]
  9. METOPROLOL TARTRATE 100 MG [Concomitant]
     Active Substance: METOPROLOL TARTRATE
  10. GLIPIZIDE 10 MG [Concomitant]
     Active Substance: GLIPIZIDE
  11. ZTLIDO [Concomitant]
     Active Substance: LIDOCAINE
     Route: 061
  12. LOSARTAN POTASSIUM 100 MG [Concomitant]
     Active Substance: LOSARTAN POTASSIUM
  13. MULTIVITAMINS [Concomitant]
     Active Substance: VITAMINS
  14. PROBIOTIC 10B [Concomitant]
  15. LOTEMAX [Concomitant]
     Active Substance: LOTEPREDNOL ETABONATE
     Route: 047
  16. JANUVIA [Concomitant]
     Active Substance: SITAGLIPTIN PHOSPHATE

REACTIONS (1)
  - Eye pain [Unknown]
